FAERS Safety Report 6087759-5 (Version None)
Quarter: 2009Q1

REPORT INFORMATION
  Report Type: 
  Country: None (occurrence: None)
  Receive Date: 20090219
  Receipt Date: 20090109
  Transmission Date: 20090719
  Serious: No
  Sender: FDA-Public Use
  Company Number: WAES 0901USA01197

PATIENT
  Sex: Male

DRUGS (2)
  1. JANUVIA [Suspect]
     Indication: DIABETES MELLITUS
     Dosage: 100 MG/DAILY/PO; 50 MG/DAILY/PO
     Route: 048
     Dates: start: 20090102
  2. JANUVIA [Suspect]
     Indication: DIABETES MELLITUS
     Dosage: 100 MG/DAILY/PO; 50 MG/DAILY/PO
     Route: 048
     Dates: start: 20090103

REACTIONS (1)
  - BLOOD CREATININE INCREASED [None]
